FAERS Safety Report 9703430 (Version 2)
Quarter: 2014Q1

REPORT INFORMATION
  Report Type: Spontaneous
  Country: US (occurrence: US)
  Receive Date: 20131122
  Receipt Date: 20140122
  Transmission Date: 20141002
  Serious: Yes (Other)
  Sender: FDA-Public Use
  Company Number: US-JNJFOC-20131108569

PATIENT
  Sex: Female
  Weight: 54.43 kg

DRUGS (6)
  1. XARELTO [Suspect]
     Indication: CEREBROVASCULAR ACCIDENT PROPHYLAXIS
     Dosage: IN LATE JAN OR EARLY FEB
     Route: 048
     Dates: start: 2013, end: 201301
  2. XARELTO [Suspect]
     Indication: CEREBROVASCULAR ACCIDENT PROPHYLAXIS
     Route: 048
     Dates: start: 201301
  3. XARELTO [Suspect]
     Indication: ATRIAL FIBRILLATION
     Route: 048
     Dates: start: 201301
  4. XARELTO [Suspect]
     Indication: ATRIAL FIBRILLATION
     Dosage: IN LATE JAN OR EARLY FEB
     Route: 048
     Dates: start: 2013, end: 201301
  5. ATENOLOL [Concomitant]
     Indication: HEART RATE IRREGULAR
     Dosage: 0.5 TABLET
     Route: 048
     Dates: start: 20131022
  6. METOPROLOL [Concomitant]
     Indication: HEART RATE IRREGULAR
     Dosage: 0.5 TABLET SINCE 2013
     Route: 048
     Dates: end: 20131022

REACTIONS (2)
  - Renal impairment [Unknown]
  - Inappropriate schedule of drug administration [Not Recovered/Not Resolved]
